FAERS Safety Report 9255997 (Version 1)
Quarter: 2013Q2

REPORT INFORMATION
  Report Type: Spontaneous
  Country: DK (occurrence: FR)
  Receive Date: 20130425
  Receipt Date: 20130425
  Transmission Date: 20140414
  Serious: Yes (Other)
  Sender: FDA-Public Use
  Company Number: FR-FRI-1000044681

PATIENT
  Age: 89 Year
  Sex: Female

DRUGS (3)
  1. ESCITALOPRAM [Suspect]
     Dosage: 5 MG
     Route: 048
     Dates: start: 20121110, end: 20121211
  2. OXYCONTIN [Concomitant]
     Dosage: 5 MG
  3. DOLIPRANE [Concomitant]
     Dosage: 3 GRAM

REACTIONS (1)
  - Spontaneous haematoma [Recovered/Resolved]
